FAERS Safety Report 5311548-X (Version None)
Quarter: 2007Q2

REPORT INFORMATION
  Report Type: 
  Country: None (occurrence: None)
  Receive Date: 20070430
  Receipt Date: 20070419
  Transmission Date: 20071010
  Serious: Yes (Other)
  Sender: FDA-Public Use
  Company Number: GB-GLAXOSMITHKLINE-B0468395A

PATIENT
  Age: 49 Year
  Sex: Female
  Weight: 79 kg

DRUGS (2)
  1. BUPROPION HYDROCHLORIDE [Suspect]
     Route: 048
     Dates: start: 20070319, end: 20070321
  2. OXYTETRACYCLINE [Concomitant]
     Route: 048
     Dates: start: 20070104

REACTIONS (5)
  - EYE SWELLING [None]
  - FACE OEDEMA [None]
  - HEADACHE [None]
  - NASAL CONGESTION [None]
  - PALPITATIONS [None]
